FAERS Safety Report 20935499 (Version 3)
Quarter: 2022Q3

REPORT INFORMATION
  Report Type: Spontaneous
  Country: US (occurrence: US)
  Receive Date: 20220609
  Receipt Date: 20220809
  Transmission Date: 20221027
  Serious: Yes (Hospitalization, Other)
  Sender: FDA-Public Use
  Company Number: US-JNJFOC-20220608903

PATIENT
  Sex: Male

DRUGS (2)
  1. ERLEADA [Suspect]
     Active Substance: APALUTAMIDE
     Indication: Product used for unknown indication
     Dosage: 60 MG X 4
     Route: 048
  2. ERLEADA [Suspect]
     Active Substance: APALUTAMIDE
     Dosage: 60 MG X 2
     Route: 048

REACTIONS (2)
  - Hospitalisation [Unknown]
  - Drug ineffective [Unknown]
